FAERS Safety Report 8517342-0 (Version None)
Quarter: 2012Q3

REPORT INFORMATION
  Report Type: 
  Country: None (occurrence: None)
  Receive Date: 20120718
  Receipt Date: 20120712
  Transmission Date: 20120928
  Serious: Yes (Hospitalization, Disabling, Other)
  Sender: FDA-Public Use
  Company Number: FR-PFIZER INC-2007061691

PATIENT
  Sex: Male
  Weight: 85 kg

DRUGS (6)
  1. CELEBREX [Suspect]
  2. CELEBREX [Suspect]
     Indication: MUSCULOSKELETAL PAIN
  3. CELEBREX [Suspect]
     Indication: ARTHRALGIA
  4. CELEBREX [Suspect]
  5. VIOXX [Suspect]
     Dates: start: 20040903
  6. CELEBREX [Suspect]
     Indication: TENDONITIS
     Dates: start: 20040413

REACTIONS (5)
  - BEHCET'S SYNDROME [None]
  - LIBIDO DECREASED [None]
  - DYSPEPSIA [None]
  - AUTOIMMUNE THROMBOCYTOPENIA [None]
  - ERECTILE DYSFUNCTION [None]
